FAERS Safety Report 7205690-6 (Version None)
Quarter: 2010Q4

REPORT INFORMATION
  Report Type: 
  Country: None (occurrence: None)
  Receive Date: 20101231
  Receipt Date: 20101223
  Transmission Date: 20110411
  Serious: Yes (Other)
  Sender: FDA-Public Use
  Company Number: US-AMGEN-USASP2010008801

PATIENT

DRUGS (3)
  1. NEULASTA [Suspect]
     Indication: BONE MARROW FAILURE
     Dosage: 6 MG, UNK
     Dates: start: 20100923, end: 20101201
  2. DOXORUBICIN HCL [Concomitant]
     Dosage: UNK
     Dates: start: 20100923, end: 20101201
  3. CYTOXAN [Concomitant]
     Dosage: UNK
     Dates: start: 20100923, end: 20101201

REACTIONS (3)
  - BONE PAIN [None]
  - DRUG INEFFECTIVE [None]
  - NEUTROPENIA [None]
